FAERS Safety Report 9631213 (Version 3)
Quarter: 2013Q4

REPORT INFORMATION
  Report Type: Spontaneous
  Country: FR (occurrence: None)
  Receive Date: 20131015
  Receipt Date: 20131029
  Transmission Date: 20140711
  Serious: Yes (Life-Threatening, Hospitalization)
  Sender: FDA-Public Use
  Company Number: ACO_38936_2013

PATIENT
  Age: 55 Year
  Sex: Female

DRUGS (9)
  1. FAMPYRA [Suspect]
     Indication: GAIT DISTURBANCE
     Route: 048
     Dates: start: 20130701, end: 20130904
  2. XATRAL (ALFUZOSIN HYDROCHLORIDE [Concomitant]
  3. SEROPLEX (ESCITALOPRAM OXALATE) [Concomitant]
  4. EFERALGAN CODEINE (CODEINE PHOSPHATE, PARACETAMOL) [Concomitant]
  5. RIVOTRIL (CLONAZEPAM) [Concomitant]
  6. AUGMENTIN (AMOXICILLIN SODIUM, CLAVULANATE POTASSIUM) [Concomitant]
  7. KARDEGIC (ACETYLSALICYLATE LYSINE) [Concomitant]
  8. IMOVANE (ZOPICLONE) [Concomitant]
  9. LOVENOX (ENOXAPARIN SODIUM) [Concomitant]

REACTIONS (4)
  - Acute myocardial infarction [None]
  - Intracardiac thrombus [None]
  - Sinusitis [None]
  - Ear infection [None]
